FAERS Safety Report 7559502-1 (Version None)
Quarter: 2011Q2

REPORT INFORMATION
  Report Type: 
  Country: None (occurrence: None)
  Receive Date: 20110621
  Receipt Date: 20110614
  Transmission Date: 20111010
  Serious: Yes (Hospitalization)
  Sender: FDA-Public Use
  Company Number: US-AMGEN-USASP2011023634

PATIENT
  Age: 96 Year
  Sex: Male
  Weight: 74.83 kg

DRUGS (1)
  1. EPOGEN [Suspect]
     Indication: RENAL FAILURE CHRONIC
     Dosage: 10000 IU, QWK
     Route: 058
     Dates: start: 20110506, end: 20110506

REACTIONS (3)
  - CHRONIC OBSTRUCTIVE PULMONARY DISEASE [None]
  - LOBAR PNEUMONIA [None]
  - CARDIAC FAILURE [None]
